FAERS Safety Report 7351161-6 (Version None)
Quarter: 2011Q1

REPORT INFORMATION
  Report Type: 
  Country: None (occurrence: None)
  Receive Date: 20110314
  Receipt Date: 20110308
  Transmission Date: 20110831
  Serious: Yes (Hospitalization)
  Sender: FDA-Public Use
  Company Number: US-ELI_LILLY_AND_COMPANY-US201103002980

PATIENT
  Sex: Male

DRUGS (3)
  1. HUMULIN R [Suspect]
     Dosage: 120 U, EACH EVENING
  2. HUMULIN R [Suspect]
     Indication: DIABETES MELLITUS
     Dosage: 110 U, EACH MORNING
  3. HUMULIN R [Suspect]
     Dosage: 110 U, DAILY (1/D)

REACTIONS (1)
  - HOSPITALISATION [None]
